FAERS Safety Report 4760332-4 (Version None)
Quarter: 2005Q3

REPORT INFORMATION
  Report Type: 
  Country: None (occurrence: None)
  Receive Date: 20050902
  Receipt Date: 20040803
  Transmission Date: 20060218
  Serious: Yes (Hospitalization, Other)
  Sender: FDA-Public Use
  Company Number: US-AMGEN-US145103

PATIENT
  Sex: Male
  Weight: 3.4 kg

DRUGS (2)
  1. ENBREL [Suspect]
     Indication: CROHN'S DISEASE
     Route: 064
     Dates: start: 20030101, end: 20030917
  2. PREDNISONE TAB [Concomitant]
     Route: 064
     Dates: start: 20040101

REACTIONS (4)
  - CEREBRAL INFARCTION [None]
  - CONVULSION [None]
  - DRUG EXPOSURE DURING PREGNANCY [None]
  - ENZYME ABNORMALITY [None]
